FAERS Safety Report 18684820 (Version 2)
Quarter: 2021Q2

REPORT INFORMATION
  Report Type: Report from Study
  Country: CA (occurrence: CA)
  Receive Date: 20201230
  Receipt Date: 20210407
  Transmission Date: 20210717
  Serious: Yes (Hospitalization)
  Sender: FDA-Public Use
  Company Number: CA-JNJFOC-20201243481

PATIENT
  Age: 60 Year
  Sex: Male

DRUGS (2)
  1. STELARA [Suspect]
     Active Substance: USTEKINUMAB
     Indication: CROHN^S DISEASE
     Route: 058
     Dates: start: 20201104
  2. STELARA [Suspect]
     Active Substance: USTEKINUMAB
     Dosage: ON 11?FEB?2021, THE PATIENT RECEIVED HIS 2 ND INJECTION WITH 90 MG DOSE OF USTEKINUMAB
     Route: 058
     Dates: start: 202012

REACTIONS (3)
  - Product use issue [Unknown]
  - Off label use [Unknown]
  - Infection [Recovered/Resolved]

NARRATIVE: CASE EVENT DATE: 202012
